FAERS Safety Report 16068510 (Version 2)
Quarter: 2019Q2

REPORT INFORMATION
  Report Type: Spontaneous
  Country: DE (occurrence: DE)
  Receive Date: 20190313
  Receipt Date: 20190521
  Transmission Date: 20190711
  Serious: Yes (Hospitalization)
  Sender: FDA-Public Use
  Company Number: DE-ELI_LILLY_AND_COMPANY-DE201903005064

PATIENT
  Age: 51 Year
  Sex: Female
  Weight: 55 kg

DRUGS (15)
  1. DIFLUCAN [Concomitant]
     Active Substance: FLUCONAZOLE
     Indication: MUCOSAL INFLAMMATION
     Dosage: 40 MG/M2, DAILY
     Route: 048
     Dates: start: 20181022
  2. ERBITUX [Suspect]
     Active Substance: CETUXIMAB
     Indication: ORAL CAVITY CANCER METASTATIC
     Dosage: UNK, UNKNOWN
     Route: 065
     Dates: start: 20190222
  3. FLUOROURACIL 5 FU [Suspect]
     Active Substance: FLUOROURACIL
     Indication: ORAL CAVITY CANCER METASTATIC
     Dosage: UNK, UNKNOWN
     Route: 065
     Dates: start: 20180222
  4. PANTOPRAZOLE [Concomitant]
     Active Substance: PANTOPRAZOLE
     Indication: PROPHYLAXIS
     Dosage: 40 MG, DAILY
     Route: 048
  5. AMPHO MORONAL [Concomitant]
     Active Substance: AMPHOTERICIN B
     Indication: MUCOSAL INFLAMMATION
     Dosage: 100 MG/M2, UNK
     Route: 048
     Dates: start: 20181030
  6. ANAESTHESIN-RIVANOL-PASTILLEN [Concomitant]
     Indication: MUCOSAL INFLAMMATION
     Dosage: 8 MG, UNK
     Route: 048
     Dates: start: 20181101
  7. CIPROFLOXACIN. [Concomitant]
     Active Substance: CIPROFLOXACIN
     Indication: MUCOSAL INFLAMMATION
     Dosage: 250 MG, UNK
     Route: 048
     Dates: start: 20181114, end: 20181120
  8. ONDANSETRON [Concomitant]
     Active Substance: ONDANSETRON
     Indication: PROPHYLAXIS
     Dosage: 8 MG, UNK
     Route: 048
     Dates: start: 20190220, end: 20190226
  9. AMPHOTERICIN B. [Concomitant]
     Active Substance: AMPHOTERICIN B
     Indication: MUCOSAL INFLAMMATION
     Dosage: 10 MG, UNK
     Dates: start: 20181030
  10. MORPHINE [Concomitant]
     Active Substance: MORPHINE
     Indication: CANCER PAIN
     Dosage: 10 MG, UNK
     Dates: start: 20181021
  11. CLINDAMYCIN. [Concomitant]
     Active Substance: CLINDAMYCIN
     Indication: PROPHYLAXIS
     Dosage: MG
     Route: 048
     Dates: start: 20181001, end: 20181004
  12. CISPLATIN. [Suspect]
     Active Substance: CISPLATIN
     Indication: ORAL CAVITY CANCER METASTATIC
     Dosage: UNK UNK, UNKNOWN
     Route: 065
     Dates: start: 20190222
  13. FENISTIL [Concomitant]
     Active Substance: DIMETHINDENE
     Indication: RASH
     Dosage: 1 MG/G
     Route: 061
     Dates: start: 20181109, end: 20181115
  14. LORAZEPAM. [Concomitant]
     Active Substance: LORAZEPAM
     Indication: PRODUCT USED FOR UNKNOWN INDICATION
     Dosage: .5 MG, UNK
     Dates: start: 20181008
  15. CEFUROXIME. [Concomitant]
     Active Substance: CEFUROXIME
     Indication: PYREXIA
     Dosage: 500 MG, UNK
     Route: 048
     Dates: start: 20190103, end: 20190105

REACTIONS (8)
  - Diarrhoea [Unknown]
  - General physical health deterioration [Recovered/Resolved]
  - Nausea [Unknown]
  - Back pain [Unknown]
  - Asthenia [Unknown]
  - Oliguria [Unknown]
  - Flank pain [Unknown]
  - Hypophagia [Unknown]

NARRATIVE: CASE EVENT DATE: 20190228
